FAERS Safety Report 13840034 (Version 1)
Quarter: 2017Q3

REPORT INFORMATION
  Report Type: Spontaneous
  Country: US (occurrence: US)
  Receive Date: 20170807
  Receipt Date: 20170807
  Transmission Date: 20171127
  Serious: Yes (Hospitalization)
  Sender: FDA-Public Use
  Company Number: None

PATIENT
  Age: 63 Year
  Sex: Female

DRUGS (7)
  1. AMBIEN [Concomitant]
     Active Substance: ZOLPIDEM TARTRATE
  2. ALBUTEROL. [Concomitant]
     Active Substance: ALBUTEROL
  3. ZOLFOT [Concomitant]
  4. WARFARIN [Concomitant]
     Active Substance: WARFARIN
  5. PREDNISONE. [Concomitant]
     Active Substance: PREDNISONE
  6. NUCALA [Suspect]
     Active Substance: MEPOLIZUMAB
     Indication: ASTHMA
     Route: 058
     Dates: start: 20161003
  7. SEROQUEL [Concomitant]
     Active Substance: QUETIAPINE FUMARATE

REACTIONS (2)
  - Therapy cessation [None]
  - Treatment failure [None]

NARRATIVE: CASE EVENT DATE: 201707
